FAERS Safety Report 8809587 (Version 1)
Quarter: 2012Q4

REPORT INFORMATION
  Report Type: 
  Country: US (occurrence: US)
  Receive Date: 20120926
  Receipt Date: 20120926
  Transmission Date: 20130627
  Serious: Yes (Other)
  Sender: FDA-Public Use
  Company Number: US-VERTEX PHARMACEUTICAL INC.-AE-2012-007618

PATIENT
  Age: 59 Year
  Sex: Female
  Weight: 86.82 kg

DRUGS (14)
  1. INCIVEK [Suspect]
     Indication: HEPATITIS C
     Route: 048
     Dates: start: 20120515
  2. RIBASPHERE [Concomitant]
     Indication: HEPATITIS C
     Route: 048
     Dates: start: 20120713
  3. RIBASPHERE [Concomitant]
     Route: 048
  4. RIBASPHERE [Concomitant]
     Route: 048
  5. PEGASYS [Concomitant]
     Indication: HEPATITIS C
     Route: 058
     Dates: start: 20120515
  6. TRAZODONE [Concomitant]
     Indication: DEPRESSION
     Route: 048
  7. METFORMIN [Concomitant]
     Indication: DIABETES MELLITUS
     Route: 048
  8. VICODIN [Concomitant]
     Indication: PAIN
     Route: 048
  9. GLIPIZIDE [Concomitant]
     Indication: DIABETES MELLITUS
     Route: 048
  10. HYDRALAZINE [Concomitant]
     Indication: HYPERTENSION
     Route: 048
  11. FUROSEMIDE [Concomitant]
     Indication: HYPERTENSION
     Route: 048
  12. ATENOLOL [Concomitant]
     Indication: HYPERTENSION
     Route: 048
  13. DIOVAN [Concomitant]
     Indication: HYPERTENSION
     Route: 048
  14. ASPIRIN [Concomitant]
     Route: 048

REACTIONS (13)
  - Portal hypertension [Unknown]
  - Anaemia [Not Recovered/Not Resolved]
  - Chest pain [Recovered/Resolved]
  - Joint swelling [Not Recovered/Not Resolved]
  - Depression [Not Recovered/Not Resolved]
  - Blood glucose decreased [Not Recovered/Not Resolved]
  - Dizziness [Not Recovered/Not Resolved]
  - Visual impairment [Recovered/Resolved]
  - Epistaxis [Recovered/Resolved]
  - Fatigue [Not Recovered/Not Resolved]
  - Asthenia [Not Recovered/Not Resolved]
  - Anorectal discomfort [Recovered/Resolved]
  - Gout [Not Recovered/Not Resolved]
